FAERS Safety Report 17266966 (Version 1)
Quarter: 2019Q4

REPORT INFORMATION
  Report Type: Spontaneous
  Country: US (occurrence: US)
  Receive Date: 20191219
  Receipt Date: 20191219
  Transmission Date: 20200122
  Serious: Yes (Hospitalization)
  Sender: FDA-Public Use
  Company Number: None

PATIENT
  Age: 75 Year
  Sex: Male
  Weight: 81.5 kg

DRUGS (1)
  1. IPILIMUMAB (BMS-734016; MDX-010 TRANSFECTOMA-DERIVED) [Suspect]
     Active Substance: IPILIMUMAB
     Dates: end: 20190923

REACTIONS (5)
  - Ulcer [None]
  - Pancreatitis [None]
  - Colitis [None]
  - Hepatic lesion [None]
  - Sepsis [None]

NARRATIVE: CASE EVENT DATE: 20191104
